FAERS Safety Report 17798391 (Version 1)
Quarter: 2020Q2

REPORT INFORMATION
  Report Type: Spontaneous
  Country: TR (occurrence: TR)
  Receive Date: 20200518
  Receipt Date: 20200518
  Transmission Date: 20200714
  Serious: Yes (Other)
  Sender: FDA-Public Use
  Company Number: TR-SUN PHARMACEUTICAL INDUSTRIES LTD-2020RR-247279

PATIENT
  Age: 34 Year
  Sex: Female

DRUGS (2)
  1. PARACETAMOL [Suspect]
     Active Substance: ACETAMINOPHEN
     Indication: PROCEDURAL PAIN
     Dosage: 1 GRAM, TID
     Route: 065
  2. BUPIVACAINE. [Suspect]
     Active Substance: BUPIVACAINE
     Indication: PROCEDURAL PAIN
     Dosage: 40 MILLILITER, IN TOTAL
     Route: 065

REACTIONS (2)
  - Therapeutic product effect incomplete [Recovered/Resolved]
  - Exposure during pregnancy [Unknown]
